FAERS Safety Report 4951254-4 (Version None)
Quarter: 2006Q1

REPORT INFORMATION
  Report Type: 
  Country: None (occurrence: None)
  Receive Date: 20060317
  Receipt Date: 20060308
  Transmission Date: 20060701
  Serious: Yes (Other)
  Sender: FDA-Public Use
  Company Number: GXKR2006JP01319

PATIENT
  Age: 51 Year
  Sex: Male

DRUGS (4)
  1. RIBAVIRIN [Suspect]
     Indication: HEPATITIS C
  2. INTERFERON ALPHA (NGX) (INTERFERON ALPHA) UNKNOWN [Suspect]
  3. TACROLIMUS (TACROLIMUS) [Concomitant]
  4. MYCOPHENOLATE MOFETIL [Suspect]

REACTIONS (6)
  - APLASIA PURE RED CELL [None]
  - DISEASE RECURRENCE [None]
  - DRUG INTERACTION [None]
  - HEPATITIS C [None]
  - LIVER TRANSPLANT REJECTION [None]
  - NORMOCHROMIC NORMOCYTIC ANAEMIA [None]
